FAERS Safety Report 4563731-9 (Version None)
Quarter: 2005Q1

REPORT INFORMATION
  Report Type: 
  Country: None (occurrence: None)
  Receive Date: 20050112
  Receipt Date: 20050112
  Transmission Date: 20050727
  Serious: No
  Sender: FDA-Public Use
  Company Number: None

PATIENT
  Sex: Female

DRUGS (1)
  1. LISINOPRIL  40 MG DAILY [Suspect]
     Indication: HYPERTENSION
     Dosage: PO DAILY
     Route: 048
     Dates: start: 20040912, end: 20040913

REACTIONS (2)
  - FEELING ABNORMAL [None]
  - PAIN [None]
